FAERS Safety Report 21041875 (Version 1)
Quarter: 2022Q3

REPORT INFORMATION
  Report Type: Report from Study
  Country: CA (occurrence: CA)
  Receive Date: 20220705
  Receipt Date: 20220705
  Transmission Date: 20221027
  Serious: Yes (Other)
  Sender: FDA-Public Use
  Company Number: CA-ABBVIE-22K-028-4451398-00

PATIENT
  Age: 27 Year
  Sex: Female

DRUGS (2)
  1. HUMIRA [Suspect]
     Active Substance: ADALIMUMAB
     Indication: Crohn^s disease
     Route: 058
     Dates: start: 20190128
  2. HUMIRA [Suspect]
     Active Substance: ADALIMUMAB
     Dosage: DOSE AND FREQUENCY DECREASED
     Route: 058

REACTIONS (3)
  - Vaginal fistula [Unknown]
  - Post procedural fistula [Unknown]
  - Drug level increased [Unknown]

NARRATIVE: CASE EVENT DATE: 20211101
